FAERS Safety Report 5667341-1 (Version None)
Quarter: 2008Q1

REPORT INFORMATION
  Report Type: 
  Country: None (occurrence: None)
  Receive Date: 20080315
  Receipt Date: 20080118
  Transmission Date: 20080703
  Serious: No
  Sender: FDA-Public Use
  Company Number: US-ABBOTT-08P-163-0434195-00

PATIENT
  Sex: Male
  Weight: 87.622 kg

DRUGS (1)
  1. HUMIRA [Suspect]
     Indication: CROHN'S DISEASE
     Route: 058
     Dates: start: 20071001

REACTIONS (5)
  - CONTUSION [None]
  - INJECTION SITE NODULE [None]
  - INJECTION SITE URTICARIA [None]
  - PRURITUS [None]
  - SWELLING [None]
